FAERS Safety Report 10647928 (Version 1)
Quarter: 2014Q4

REPORT INFORMATION
  Report Type: Spontaneous
  Country: US (occurrence: None)
  Receive Date: 20141211
  Receipt Date: 20141211
  Transmission Date: 20150529
  Serious: Yes (Death, Hospitalization)
  Sender: FDA-Public Use
  Company Number: None

PATIENT
  Age: 82 Year
  Sex: Male
  Weight: 103.8 kg

DRUGS (4)
  1. BEVACIZUMAB [Suspect]
     Active Substance: BEVACIZUMAB
     Dates: end: 20140107
  2. CARBOPLATIN. [Suspect]
     Active Substance: CARBOPLATIN
     Dates: end: 20130702
  3. TAXOL [Suspect]
     Active Substance: PACLITAXEL
     Dates: end: 20130702
  4. PEMETREXED [Suspect]
     Active Substance: PEMETREXED
     Dates: end: 20140107

REACTIONS (5)
  - Pleural effusion [None]
  - Adenocarcinoma [None]
  - Discomfort [None]
  - Oxygen saturation decreased [None]
  - Dyspnoea [None]

NARRATIVE: CASE EVENT DATE: 20140116
